FAERS Safety Report 4330789-1 (Version None)
Quarter: 2004Q1

REPORT INFORMATION
  Report Type: 
  Country: None (occurrence: None)
  Receive Date: 20040331
  Receipt Date: 20040317
  Transmission Date: 20041129
  Serious: Yes (Death)
  Sender: FDA-Public Use
  Company Number: USA040360584

PATIENT
  Age: 82 Year
  Sex: Female
  Weight: 34 kg

DRUGS (10)
  1. FORTEO [Suspect]
     Indication: DECREASED ACTIVITY
     Dosage: 20 UG/1 DAY
     Dates: start: 20030602
  2. FORTEO [Suspect]
     Indication: OSTEOPOROSIS
     Dosage: 20 UG/1 DAY
     Dates: start: 20030602
  3. FORTEO [Suspect]
     Indication: RHEUMATOID ARTHRITIS
     Dosage: 20 UG/1 DAY
     Dates: start: 20030602
  4. EVISTA [Suspect]
     Indication: OSTEOPOROSIS
     Dosage: 60 MG/1 DAY
  5. PREDNISONE [Concomitant]
  6. BEXTRA [Concomitant]
  7. CALCIUM [Concomitant]
  8. MULTI-VITAMIN [Concomitant]
  9. METHOTREXATE [Concomitant]
  10. CALTRATE (CALCIUM CARBONATE) [Concomitant]

REACTIONS (2)
  - CHRONIC OBSTRUCTIVE AIRWAYS DISEASE [None]
  - RHEUMATOID LUNG [None]
